FAERS Safety Report 6371614-7 (Version None)
Quarter: 2009Q3

REPORT INFORMATION
  Report Type: 
  Country: None (occurrence: None)
  Receive Date: 20090923
  Receipt Date: 20080410
  Transmission Date: 20100115
  Serious: No
  Sender: FDA-Public Use
  Company Number: US-ASTRAZENECA-2007UW28984

PATIENT
  Age: 40 Year
  Sex: Female
  Weight: 106.1 kg

DRUGS (16)
  1. SEROQUEL [Suspect]
     Indication: POST-TRAUMATIC STRESS DISORDER
     Route: 048
     Dates: start: 20021007
  2. SEROQUEL [Suspect]
     Indication: OBSESSIVE-COMPULSIVE PERSONALITY DISORDER
     Route: 048
     Dates: start: 20021007
  3. SEROQUEL [Suspect]
     Indication: DEPRESSION
     Route: 048
     Dates: start: 20021007
  4. SEROQUEL [Suspect]
     Dosage: VARIOUS DOSES
     Route: 048
     Dates: start: 20030301, end: 20070101
  5. SEROQUEL [Suspect]
     Dosage: VARIOUS DOSES
     Route: 048
     Dates: start: 20030301, end: 20070101
  6. SEROQUEL [Suspect]
     Dosage: VARIOUS DOSES
     Route: 048
     Dates: start: 20030301, end: 20070101
  7. SEROQUEL [Suspect]
     Dosage: 25 MG IN MORNING AND 100 MG AT NIGHT
     Route: 048
     Dates: start: 20031013
  8. SEROQUEL [Suspect]
     Dosage: 25 MG IN MORNING AND 100 MG AT NIGHT
     Route: 048
     Dates: start: 20031013
  9. SEROQUEL [Suspect]
     Dosage: 25 MG IN MORNING AND 100 MG AT NIGHT
     Route: 048
     Dates: start: 20031013
  10. GEODON [Concomitant]
  11. RISPERDAL [Concomitant]
  12. ZYPREXA [Concomitant]
  13. LEXAPRO [Concomitant]
     Dates: start: 20040101
  14. PAXIL [Concomitant]
     Dosage: 12.5 MG-25 MG
     Dates: start: 20030418
  15. ATIVAN [Concomitant]
     Indication: ANXIETY
     Dates: start: 20030803
  16. ALTACE [Concomitant]
     Indication: HYPERTENSION
     Dates: start: 20030418

REACTIONS (5)
  - BLOOD CHOLESTEROL INCREASED [None]
  - DIABETES MELLITUS [None]
  - FLUID RETENTION [None]
  - OEDEMA PERIPHERAL [None]
  - WEIGHT INCREASED [None]
